FAERS Safety Report 16473963 (Version 1)
Quarter: 2019Q2

REPORT INFORMATION
  Report Type: Spontaneous
  Country: US (occurrence: US)
  Receive Date: 20190515
  Receipt Date: 20190515
  Transmission Date: 20190711
  Serious: No
  Sender: FDA-Public Use
  Company Number: None

PATIENT
  Age: 69 Year
  Sex: Female

DRUGS (1)
  1. FORTEO [Suspect]
     Active Substance: TERIPARATIDE
     Indication: OSTEOPOROSIS
     Dosage: ?          OTHER STRENGTH:600 /2.4 UG/ML;?
     Route: 058
     Dates: start: 201704

REACTIONS (4)
  - Kidney infection [None]
  - Fatigue [None]
  - Malaise [None]
  - Cystitis [None]
